FAERS Safety Report 13941408 (Version 2)
Quarter: 2017Q3

REPORT INFORMATION
  Report Type: Spontaneous
  Country: AU (occurrence: AU)
  Receive Date: 20170906
  Receipt Date: 20170913
  Transmission Date: 20171127
  Serious: Yes (Other)
  Sender: FDA-Public Use
  Company Number: PHHY2017AU129136

PATIENT
  Sex: Male

DRUGS (6)
  1. COSENTYX [Suspect]
     Active Substance: SECUKINUMAB
     Indication: ANKYLOSING SPONDYLITIS
     Dosage: 300 MG, QMO Q4WEEKS
     Route: 058
     Dates: start: 201609
  2. MYCOPHENOLATE [Concomitant]
     Active Substance: MYCOPHENOLIC ACID
     Indication: UVEITIS
     Dosage: 1 G, UNK
     Route: 048
     Dates: start: 2015
  3. METHOTREXATE. [Concomitant]
     Active Substance: METHOTREXATE
     Indication: UVEITIS
     Dosage: 25 MG, QW
     Route: 048
     Dates: start: 2013
  4. KETOPROFEN. [Concomitant]
     Active Substance: KETOPROFEN
     Indication: ANKYLOSING SPONDYLITIS
     Dosage: 200 MG, UNK
     Route: 048
     Dates: start: 2016
  5. PREDNISOLONE. [Concomitant]
     Active Substance: PREDNISOLONE
     Indication: ANKYLOSING SPONDYLITIS
     Dosage: 5 MG, UNK
     Route: 048
     Dates: start: 2013
  6. TARGIN [Concomitant]
     Active Substance: NALOXONE HYDROCHLORIDE\OXYCODONE HYDROCHLORIDE
     Indication: ANKYLOSING SPONDYLITIS
     Dosage: 120 MG, UNK
     Route: 048
     Dates: start: 2015

REACTIONS (4)
  - Skin ulcer [Not Recovered/Not Resolved]
  - Inflammatory bowel disease [Unknown]
  - Pyoderma gangrenosum [Recovering/Resolving]
  - Vasculitic ulcer [Unknown]

NARRATIVE: CASE EVENT DATE: 201703
